FAERS Safety Report 4893043-5 (Version None)
Quarter: 2005Q4

REPORT INFORMATION
  Report Type: 
  Country: None (occurrence: None)
  Receive Date: 20051220
  Receipt Date: 20050902
  Transmission Date: 20060501
  Serious: Yes (Other)
  Sender: FDA-Public Use
  Company Number: 416821

PATIENT
  Sex: Female

DRUGS (3)
  1. BONIVA [Suspect]
     Dosage: ORAL
     Route: 048
  2. NEXIUM [Concomitant]
  3. VOLTAREN [Concomitant]

REACTIONS (3)
  - BURNING SENSATION [None]
  - DYSGEUSIA [None]
  - MYALGIA [None]
